FAERS Safety Report 16750018 (Version 3)
Quarter: 2019Q3

REPORT INFORMATION
  Report Type: Report from Study
  Country: US (occurrence: US)
  Receive Date: 20190828
  Receipt Date: 20190911
  Transmission Date: 20191005
  Serious: Yes (Hospitalization, Other)
  Sender: FDA-Public Use
  Company Number: US-AMGEN-USACT2019136474

PATIENT
  Age: 60 Year
  Sex: Female
  Weight: 77.7 kg

DRUGS (5)
  1. DENOSUMAB [Suspect]
     Active Substance: DENOSUMAB
     Indication: MALIGNANT MELANOMA
     Dosage: 120 MILLIGRAM
     Route: 058
     Dates: start: 20190726
  2. DENOSUMAB [Suspect]
     Active Substance: DENOSUMAB
     Dosage: 120 MILLIGRAM
     Route: 058
     Dates: start: 20190806
  3. PROPOFOL. [Concomitant]
     Active Substance: PROPOFOL
     Indication: SEDATION
     Route: 065
  4. ENCORAFENIB [Concomitant]
     Active Substance: ENCORAFENIB
     Indication: MALIGNANT MELANOMA
  5. BINIMETINIB [Concomitant]
     Active Substance: BINIMETINIB
     Indication: MALIGNANT MELANOMA

REACTIONS (1)
  - Respiratory failure [Recovering/Resolving]

NARRATIVE: CASE EVENT DATE: 20190815
